FAERS Safety Report 21546699 (Version 1)
Quarter: 2022Q4

REPORT INFORMATION
  Report Type: Spontaneous
  Country: IT (occurrence: IT)
  Receive Date: 20221103
  Receipt Date: 20221103
  Transmission Date: 20230112
  Serious: Yes (Hospitalization)
  Sender: FDA-Public Use
  Company Number: None

PATIENT
  Age: 67 Year
  Sex: Male

DRUGS (3)
  1. OXALIPLATIN [Suspect]
     Active Substance: OXALIPLATIN
     Indication: Chemotherapy multiple agents systemic
     Dosage: ADMINISTERED AT 80% FOR NON-OPTIMAL PERFORMANCE STATUS. UNIT DOSE : 85 MG/M2
     Dates: start: 20220727, end: 20220727
  2. IRINOTECAN [Suspect]
     Active Substance: IRINOTECAN
     Indication: Chemotherapy multiple agents systemic
     Dosage: ADMINISTERED AT 80% FOR NON-OPTIMAL PERFORMANCE STATUS. UNIT DOSE : 150 MG/M2
     Dates: start: 20220727, end: 20220727
  3. FLUOROURACIL [Concomitant]
     Active Substance: FLUOROURACIL
     Indication: Chemotherapy multiple agents systemic
     Dosage: DOSE REDUCED BY 50% FOR DPYD C.2846A} T MUTATION IN HETEROZYGOSITY. DOSE FURTHER REDUCED BY 10% DUE
     Dates: start: 20220727, end: 20220727

REACTIONS (9)
  - Diarrhoea [Recovered/Resolved with Sequelae]
  - Dehydration [Recovered/Resolved with Sequelae]
  - Oral candidiasis [Recovered/Resolved with Sequelae]
  - Asthenia [Recovered/Resolved with Sequelae]
  - Liver injury [Recovered/Resolved with Sequelae]
  - Gastrointestinal toxicity [Recovered/Resolved with Sequelae]
  - Weight decreased [Recovered/Resolved with Sequelae]
  - Vomiting [Recovered/Resolved with Sequelae]
  - Duodenitis [Recovered/Resolved with Sequelae]

NARRATIVE: CASE EVENT DATE: 20220730
